FAERS Safety Report 5039445-8 (Version None)
Quarter: 2006Q2

REPORT INFORMATION
  Report Type: 
  Country: None (occurrence: None)
  Receive Date: 20060629
  Receipt Date: 20060622
  Transmission Date: 20061013
  Serious: Yes (Death)
  Sender: FDA-Public Use
  Company Number: US-AMGEN-US183967

PATIENT
  Sex: Female

DRUGS (4)
  1. ARANESP [Suspect]
     Indication: ANAEMIA OF MALIGNANT DISEASE
     Route: 058
     Dates: start: 20051101, end: 20051201
  2. TAXOL [Concomitant]
  3. XELODA [Concomitant]
  4. RADIATION THERAPY [Concomitant]

REACTIONS (1)
  - BREAST CANCER METASTATIC [None]
